FAERS Safety Report 5963876-2 (Version None)
Quarter: 2008Q4

REPORT INFORMATION
  Report Type: 
  Country: None (occurrence: None)
  Receive Date: 20081120
  Receipt Date: 20081105
  Transmission Date: 20090506
  Serious: Yes (Hospitalization)
  Sender: FDA-Public Use
  Company Number: 2008001986

PATIENT
  Age: 56 Year
  Sex: Male

DRUGS (13)
  1. ERLOTINIB (ERLOTINIB) (TABLET) (ERLOTINIB) [Suspect]
     Indication: LUNG ADENOCARCINOMA
     Dosage: 150 MG QD ORAL
     Route: 048
     Dates: start: 20080617, end: 20080622
  2. GLYCEROL 2.6% [Concomitant]
  3. LANSOPRAZOLE [Concomitant]
  4. ZOLPIDEM TARTRATE [Concomitant]
  5. PURSENNID (SENNA LEAF) [Concomitant]
  6. OXYCONTIN [Concomitant]
  7. NOVAMIN (PROCHLORPERAZINE) [Concomitant]
  8. ALUMINUM HYDROXIDE/MAGNESIUM HYDROXIDE (ALUDROX ^WYETH^) [Concomitant]
  9. MUCOSTA (REBAMIPIDE) [Concomitant]
  10. DEPAS (ETIZOLAM) [Concomitant]
  11. DEXAMETHASONE TAB [Concomitant]
  12. VOLTAREN [Concomitant]
  13. MAGLAX (MAGNESIUM OXIDE) [Concomitant]

REACTIONS (4)
  - LYMPHOCYTE COUNT DECREASED [None]
  - PYREXIA [None]
  - RASH [None]
  - RECTAL ULCER HAEMORRHAGE [None]
